FAERS Safety Report 9207019 (Version 1)
Quarter: 2013Q2

REPORT INFORMATION
  Report Type: Spontaneous
  Country: US (occurrence: US)
  Receive Date: 20130403
  Receipt Date: 20130403
  Transmission Date: 20140414
  Serious: No
  Sender: FDA-Public Use
  Company Number: US-ASTRAZENECA-2013SE18339

PATIENT
  Age: 66 Year
  Sex: Male
  Weight: 66.7 kg

DRUGS (6)
  1. SYMBICORT [Suspect]
     Indication: HYPERSENSITIVITY
     Dosage: 190/4.5 MCG 2 PUFFS BID
     Route: 055
     Dates: start: 201211, end: 20130312
  2. LISINOPRIL [Suspect]
     Route: 048
     Dates: start: 2012
  3. HYDROCHLOROTHIAZIDE [Concomitant]
     Indication: OLIGURIA
     Route: 048
  4. CETIRIZINE [Concomitant]
     Indication: HYPERSENSITIVITY
     Route: 048
  5. LOSARTAN [Concomitant]
     Indication: HYPERTENSION
     Route: 048
     Dates: start: 20130311
  6. SIMVASTATIN [Concomitant]
     Indication: BLOOD CHOLESTEROL ABNORMAL
     Route: 048

REACTIONS (2)
  - Cough [Recovered/Resolved]
  - Drug prescribing error [Recovered/Resolved]
